FAERS Safety Report 7433098-7 (Version None)
Quarter: 2011Q2

REPORT INFORMATION
  Report Type: 
  Country: None (occurrence: None)
  Receive Date: 20110422
  Receipt Date: 20110413
  Transmission Date: 20111010
  Serious: No
  Sender: FDA-Public Use
  Company Number: US-B.I. PHARMACEUTICALS,INC./RIDGEFIELD-2011-BP-06078BP

PATIENT
  Age: 36 Year
  Sex: Female
  Weight: 107.5 kg

DRUGS (6)
  1. ADVAIR HFA [Concomitant]
     Route: 055
  2. LISINOPRIL [Concomitant]
     Route: 048
  3. BUPROPION HCL [Concomitant]
     Dosage: 150 MG
     Route: 048
  4. CARVEDILOL [Concomitant]
     Dosage: 25 MG
     Route: 048
  5. DILTIAZEM [Concomitant]
     Dosage: 240 MG
     Route: 048
  6. PRADAXA [Suspect]
     Indication: ATRIAL FIBRILLATION
     Dosage: 300 MG

REACTIONS (1)
  - PAIN IN EXTREMITY [None]
